FAERS Safety Report 21044684 (Version 1)
Quarter: 2022Q3

REPORT INFORMATION
  Report Type: Spontaneous
  Country: US (occurrence: US)
  Receive Date: 20220705
  Receipt Date: 20220705
  Transmission Date: 20221027
  Serious: Yes (Hospitalization)
  Sender: FDA-Public Use
  Company Number: US-TEVA-2022-US-2052443

PATIENT
  Age: 36 Year
  Sex: Female

DRUGS (21)
  1. BUSPIRONE [Suspect]
     Active Substance: BUSPIRONE HYDROCHLORIDE
     Indication: Generalised anxiety disorder
     Dosage: 60 MILLIGRAM DAILY;
     Route: 065
  2. OLANZAPINE [Suspect]
     Active Substance: OLANZAPINE
     Indication: Mania
     Route: 065
  3. ONDANSETRON [Suspect]
     Active Substance: ONDANSETRON
     Indication: Nausea
     Route: 065
  4. ONDANSETRON [Suspect]
     Active Substance: ONDANSETRON
     Indication: Vomiting
  5. LURASIDONE [Suspect]
     Active Substance: LURASIDONE
     Indication: Bipolar I disorder
     Route: 065
  6. LURASIDONE [Suspect]
     Active Substance: LURASIDONE
     Dosage: 120 MILLIGRAM DAILY;
     Route: 065
  7. CLONAZEPAM [Suspect]
     Active Substance: CLONAZEPAM
     Indication: Generalised anxiety disorder
     Dosage: 4 MILLIGRAM DAILY;
     Route: 065
  8. CLONAZEPAM [Suspect]
     Active Substance: CLONAZEPAM
     Indication: Mania
  9. SERTRALINE [Suspect]
     Active Substance: SERTRALINE HYDROCHLORIDE
     Indication: Bipolar I disorder
     Dosage: 50 MILLIGRAM DAILY;
     Route: 065
  10. CAFFEINE [Suspect]
     Active Substance: CAFFEINE
     Indication: Nausea
     Dosage: FORMULATION: PILL
     Route: 065
  11. CAFFEINE [Suspect]
     Active Substance: CAFFEINE
     Indication: Vomiting
  12. SODIUM CHLORIDE [Suspect]
     Active Substance: SODIUM CHLORIDE
     Indication: Serotonin syndrome
     Route: 042
  13. DIPHENHYDRAMINE [Suspect]
     Active Substance: DIPHENHYDRAMINE
     Indication: Nausea
     Route: 042
  14. DIPHENHYDRAMINE [Suspect]
     Active Substance: DIPHENHYDRAMINE
     Indication: Vomiting
  15. METOCLOPRAMIDE [Suspect]
     Active Substance: METOCLOPRAMIDE
     Indication: Serotonin syndrome
     Route: 042
  16. PANTOPRAZOLE [Suspect]
     Active Substance: PANTOPRAZOLE
     Indication: Serotonin syndrome
     Route: 042
  17. PROMETHAZINE [Suspect]
     Active Substance: PROMETHAZINE HYDROCHLORIDE
     Indication: Serotonin syndrome
     Route: 042
  18. MAGNESIUM SULFATE [Suspect]
     Active Substance: MAGNESIUM SULFATE
     Indication: Serotonin syndrome
     Route: 065
  19. POTASSIUM CHLORIDE [Suspect]
     Active Substance: POTASSIUM CHLORIDE
     Indication: Serotonin syndrome
     Route: 065
  20. PROCHLORPERAZINE [Suspect]
     Active Substance: PROCHLORPERAZINE
     Indication: Nausea
     Route: 065
  21. PROCHLORPERAZINE [Suspect]
     Active Substance: PROCHLORPERAZINE
     Indication: Vomiting

REACTIONS (5)
  - Serotonin syndrome [Recovered/Resolved]
  - Ketosis [Recovered/Resolved]
  - Metabolic acidosis [Recovered/Resolved]
  - Normal newborn [Unknown]
  - Maternal exposure during pregnancy [Unknown]
